FAERS Safety Report 8357297-5 (Version None)
Quarter: 2012Q2

REPORT INFORMATION
  Report Type: 
  Country: None (occurrence: None)
  Receive Date: 20120514
  Receipt Date: 20120510
  Transmission Date: 20120825
  Serious: Yes (Other)
  Sender: FDA-Public Use
  Company Number: PHHY2012CY039981

PATIENT
  Sex: Male
  Weight: 80 kg

DRUGS (1)
  1. ZOMETA [Suspect]
     Indication: BONE DISORDER
     Dosage: 4 MG / 5 ML PER MONTH
     Dates: start: 20110714, end: 20120329

REACTIONS (2)
  - OSTEONECROSIS OF JAW [None]
  - TOOTH INFECTION [None]
